FAERS Safety Report 22124287 (Version 1)
Quarter: 2023Q1

REPORT INFORMATION
  Report Type: Spontaneous
  Country: US (occurrence: None)
  Receive Date: 20230321
  Receipt Date: 20230321
  Transmission Date: 20230418
  Serious: No
  Sender: FDA-Public Use
  Company Number: None

PATIENT
  Age: 25 Year
  Sex: 0
  Weight: 72 kg

DRUGS (4)
  1. LUPRON DEPOT [Suspect]
     Active Substance: LEUPROLIDE ACETATE
     Indication: Transgender hormonal therapy
     Dosage: OTHER QUANTITY : 1 INJECTION(S);?OTHER FREQUENCY : ONCE A MONTH;?
     Route: 030
  2. ESTRADIOL TRANSDERMAL SYSTEM [Concomitant]
     Active Substance: ESTRADIOL
  3. VITAMIN D [Concomitant]
     Active Substance: VITAMIN D NOS
  4. CALCIUM [Concomitant]
     Active Substance: CALCIUM

REACTIONS (13)
  - Chest pain [None]
  - Dyspnoea [None]
  - Dizziness [None]
  - Feeling abnormal [None]
  - Dizziness [None]
  - Tachycardia [None]
  - Feeling abnormal [None]
  - Confusional state [None]
  - Dehydration [None]
  - Dry mouth [None]
  - Nocturia [None]
  - Restlessness [None]
  - Feeling of body temperature change [None]

NARRATIVE: CASE EVENT DATE: 20230205
